FAERS Safety Report 8852129 (Version 3)
Quarter: 2013Q1

REPORT INFORMATION
  Report Type: Spontaneous
  Country: DK (occurrence: None)
  Receive Date: 20121017
  Receipt Date: 20130123
  Transmission Date: 20140127
  Serious: Yes (Other)
  Sender: FDA-Public Use
  Company Number: 2012MA012230

PATIENT
  Sex: Male

DRUGS (6)
  1. CITALOPRAM HYDROBROMIDE [Suspect]
     Indication: DEPRESSION
     Route: 048
     Dates: start: 20120613, end: 20120627
  2. DABIGATRAN ETEXILATE [Concomitant]
  3. TAMSULOSIN [Concomitant]
  4. RAMIPRIL [Concomitant]
  5. OMEPRAZOLE [Concomitant]
  6. LOSARTAN [Concomitant]

REACTIONS (2)
  - Diplopia [None]
  - Impaired driving ability [None]
